FAERS Safety Report 9769896 (Version 1)
Quarter: 2013Q4

REPORT INFORMATION
  Report Type: Spontaneous
  Country: US (occurrence: US)
  Receive Date: 20131218
  Receipt Date: 20131218
  Transmission Date: 20140711
  Serious: No
  Sender: FDA-Public Use
  Company Number: US-VERTEX PHARMACEUTICALS INC-AE-2011-000796

PATIENT
  Age: 51 Year
  Sex: Female
  Weight: 63.64 kg

DRUGS (5)
  1. INCIVEK [Suspect]
     Indication: HEPATITIS C
     Route: 048
     Dates: start: 20110804
  2. RIBAVIRIN [Concomitant]
     Indication: HEPATITIS C
     Route: 048
     Dates: start: 20110804
  3. INTERFERON ALPHA A [Concomitant]
     Indication: HEPATITIS C
     Dates: start: 20110803
  4. ZOLOFT [Concomitant]
     Route: 048
  5. ATIVAN [Concomitant]
     Route: 048

REACTIONS (1)
  - Pruritus [Not Recovered/Not Resolved]
